FAERS Safety Report 5893658-1 (Version None)
Quarter: 2008Q3

REPORT INFORMATION
  Report Type: 
  Country: None (occurrence: None)
  Receive Date: 20080923
  Receipt Date: 20071003
  Transmission Date: 20090109
  Serious: No
  Sender: FDA-Public Use
  Company Number: US-ASTRAZENECA-2007UW23144

PATIENT
  Age: 45 Year
  Sex: Female

DRUGS (4)
  1. SEROQUEL XR [Suspect]
     Route: 048
     Dates: start: 20070910
  2. TRAZODONE HCL [Concomitant]
  3. ELAVIL [Concomitant]
  4. NEURONTIN [Concomitant]

REACTIONS (1)
  - PRURITUS [None]
